FAERS Safety Report 9135306 (Version 1)
Quarter: 2013Q1

REPORT INFORMATION
  Report Type: Spontaneous
  Country: US (occurrence: US)
  Receive Date: 20130304
  Receipt Date: 20130304
  Transmission Date: 20140127
  Serious: No
  Sender: FDA-Public Use
  Company Number: US-ENDO PHARMACEUTICALS INC.-ENDC20100026

PATIENT
  Sex: Male

DRUGS (1)
  1. ENDOCET 10MG/325MG [Suspect]
     Indication: PAIN
     Dosage: 10/325 MG
     Route: 048
     Dates: start: 2001

REACTIONS (8)
  - Ill-defined disorder [Unknown]
  - Feeling cold [Unknown]
  - Chest discomfort [Unknown]
  - Abdominal discomfort [Unknown]
  - Abdominal pain [Unknown]
  - Vomiting [Unknown]
  - Lethargy [Unknown]
  - Tremor [Unknown]
